FAERS Safety Report 7241760-4 (Version None)
Quarter: 2011Q1

REPORT INFORMATION
  Report Type: 
  Country: None (occurrence: None)
  Receive Date: 20110114
  Receipt Date: 20110103
  Transmission Date: 20110831
  Serious: Yes (Hospitalization, Other)
  Sender: FDA-Public Use
  Company Number: ACO_21264_2011

PATIENT
  Age: 48 Year
  Sex: Female

DRUGS (2)
  1. REBIF [Suspect]
     Indication: MULTIPLE SCLEROSIS
     Dosage: 132 UG, WEEKLY,SUBCUTANEOUS INJECTION, SUBCUTANEOUS
     Route: 058
     Dates: start: 20070912, end: 20101101
  2. AMPYRA [Suspect]
     Indication: GAIT DISTURBANCE
     Dosage: BID
     Dates: start: 20100101, end: 20100101

REACTIONS (9)
  - MULTIPLE SCLEROSIS RELAPSE [None]
  - FEELING ABNORMAL [None]
  - ADVERSE DRUG REACTION [None]
  - SUICIDAL BEHAVIOUR [None]
  - DECREASED APPETITE [None]
  - DRUG INEFFECTIVE [None]
  - DEPRESSION [None]
  - BACK PAIN [None]
  - CONDITION AGGRAVATED [None]
